FAERS Safety Report 14577364 (Version 1)
Quarter: 2018Q1

REPORT INFORMATION
  Report Type: Spontaneous
  Country: US (occurrence: US)
  Receive Date: 20180226
  Receipt Date: 20180226
  Transmission Date: 20180509
  Serious: Yes (Other)
  Sender: FDA-Public Use
  Company Number: None

PATIENT
  Age: 75 Year
  Sex: Male
  Weight: 84.6 kg

DRUGS (8)
  1. PROMACTA [Suspect]
     Active Substance: ELTROMBOPAG OLAMINE
     Indication: MYELODYSPLASTIC SYNDROME
     Route: 048
     Dates: start: 20180223
  2. SERTRALINE [Concomitant]
     Active Substance: SERTRALINE HYDROCHLORIDE
  3. NORCO [Concomitant]
     Active Substance: ACETAMINOPHEN\HYDROCODONE BITARTRATE
  4. ASPIRIN EC [Concomitant]
     Active Substance: ASPIRIN
  5. DANAZOL. [Concomitant]
     Active Substance: DANAZOL
  6. TYLENOL WITH CODEINE [Concomitant]
     Active Substance: ACETAMINOPHEN\CODEINE PHOSPHATE
  7. FUROSEMIDE. [Concomitant]
     Active Substance: FUROSEMIDE
  8. ARANESP [Concomitant]
     Active Substance: DARBEPOETIN ALFA

REACTIONS (1)
  - Constipation [None]
